FAERS Safety Report 10185857 (Version 5)
Quarter: 2014Q4

REPORT INFORMATION
  Report Type: Report from Study
  Country: US (occurrence: US)
  Receive Date: 20140521
  Receipt Date: 20141110
  Transmission Date: 20150528
  Serious: Yes (Hospitalization)
  Sender: FDA-Public Use
  Company Number: US-ACTELION-A-NJ2014-98921

PATIENT
  Age: 74 Year
  Sex: Female

DRUGS (1)
  1. MACITENTAN [Suspect]
     Active Substance: MACITENTAN
     Indication: COR PULMONALE CHRONIC
     Dosage: 10 MG, UNK
     Route: 048

REACTIONS (13)
  - Transfusion [Unknown]
  - Asthenia [Unknown]
  - Dyspepsia [Unknown]
  - Renal surgery [Unknown]
  - Monoplegia [Unknown]
  - Haemorrhage [Unknown]
  - Anaemia [Unknown]
  - Nephrolithiasis [Unknown]
  - Renal artery stent placement [Unknown]
  - Hypotension [Unknown]
  - Dizziness [Unknown]
  - Gout [Unknown]
  - Fungal infection [Unknown]

NARRATIVE: CASE EVENT DATE: 20140406
